FAERS Safety Report 9114890 (Version 3)
Quarter: 2013Q2

REPORT INFORMATION
  Report Type: Spontaneous
  Country: GR (occurrence: GR)
  Receive Date: 20130208
  Receipt Date: 20130626
  Transmission Date: 20140414
  Serious: Yes (Other)
  Sender: FDA-Public Use
  Company Number: GR-ABBOTT-13P-066-1046302-00

PATIENT
  Age: 67 Year
  Sex: Male

DRUGS (2)
  1. HUMIRA [Suspect]
     Indication: COLITIS ULCERATIVE
     Dosage: LOADING DOSE OF 160MG
     Route: 058
     Dates: start: 20130122
  2. CORTISONE [Concomitant]
     Indication: COLITIS ULCERATIVE

REACTIONS (1)
  - Deafness unilateral [Recovering/Resolving]
